FAERS Safety Report 7086438-5 (Version None)
Quarter: 2010Q4

REPORT INFORMATION
  Report Type: 
  Country: None (occurrence: None)
  Receive Date: 20101105
  Receipt Date: 20100928
  Transmission Date: 20110411
  Serious: Yes (Hospitalization, Other)
  Sender: FDA-Public Use
  Company Number: US-BAXTER-2010BH002717

PATIENT
  Age: 37 Year
  Sex: Female
  Weight: 108 kg

DRUGS (21)
  1. HEPARIN SODIUM INJECTION [Suspect]
     Indication: THROMBOSIS PROPHYLAXIS
     Route: 058
     Dates: start: 20080209, end: 20080211
  2. HEPARIN SODIUM INJECTION [Suspect]
     Indication: CATHETER PLACEMENT
     Route: 058
     Dates: start: 20080209, end: 20080211
  3. HEPARIN SODIUM INJECTION [Suspect]
     Route: 042
     Dates: start: 20080213, end: 20080213
  4. HEPARIN SODIUM INJECTION [Suspect]
     Route: 042
     Dates: start: 20080213, end: 20080213
  5. HEPARIN SODIUM INJECTION [Suspect]
     Route: 042
     Dates: start: 20080213, end: 20080213
  6. HEPARIN SODIUM INJECTION [Suspect]
     Route: 042
     Dates: start: 20080213, end: 20080213
  7. HEPARIN SODIUM INJECTION [Suspect]
     Route: 042
     Dates: start: 20080214, end: 20080214
  8. HEPARIN SODIUM INJECTION [Suspect]
     Route: 042
     Dates: start: 20080214, end: 20080214
  9. HEPARIN SODIUM INJECTION [Suspect]
     Route: 042
     Dates: start: 20080216, end: 20080216
  10. HEPARIN SODIUM INJECTION [Suspect]
     Route: 042
     Dates: start: 20080216, end: 20080216
  11. LOVENOX [Suspect]
     Indication: THROMBOSIS PROPHYLAXIS
     Route: 058
     Dates: start: 20080209, end: 20080209
  12. ALBUTEROL [Concomitant]
     Indication: ASTHMA
     Route: 055
  13. ADVAIR DISKUS 100/50 [Concomitant]
     Indication: ASTHMA
     Route: 055
  14. PREDNISONE [Concomitant]
     Indication: PRODUCT USED FOR UNKNOWN INDICATION
     Route: 065
  15. PULMICORT [Concomitant]
     Indication: ASTHMA
     Route: 055
  16. ALBUTEROL SULFATE AND IPRATROPIUM BROMIDE [Concomitant]
     Indication: ASTHMA
     Route: 055
  17. FLONASE [Concomitant]
     Indication: PRODUCT USED FOR UNKNOWN INDICATION
     Route: 045
  18. ALBUTEROL [Concomitant]
     Route: 055
  19. TUSSIONEX [Concomitant]
     Indication: PRODUCT USED FOR UNKNOWN INDICATION
     Route: 048
  20. SINGULAIR [Concomitant]
     Indication: PRODUCT USED FOR UNKNOWN INDICATION
     Route: 048
  21. NASONEX [Concomitant]
     Indication: PRODUCT USED FOR UNKNOWN INDICATION
     Route: 045

REACTIONS (13)
  - ASTHMA [None]
  - CONTUSION [None]
  - ESCHERICHIA URINARY TRACT INFECTION [None]
  - GASTROINTESTINAL HAEMORRHAGE [None]
  - HAEMATURIA [None]
  - HYPERSENSITIVITY [None]
  - MYALGIA [None]
  - NAUSEA [None]
  - NON-CARDIAC CHEST PAIN [None]
  - PYREXIA [None]
  - RHINITIS [None]
  - THROMBOTIC THROMBOCYTOPENIC PURPURA [None]
  - VOMITING [None]
